FAERS Safety Report 21143299 (Version 1)
Quarter: 2022Q3

REPORT INFORMATION
  Report Type: Report from Study
  Country: US (occurrence: US)
  Receive Date: 20220728
  Receipt Date: 20220728
  Transmission Date: 20221026
  Serious: No
  Sender: FDA-Public Use
  Company Number: US-BIOVITRUM-2022US08843

PATIENT
  Age: 36 Year
  Sex: Male

DRUGS (1)
  1. KINERET [Suspect]
     Active Substance: ANAKINRA
     Indication: Crohn^s disease
     Dates: start: 20190531

REACTIONS (6)
  - Nausea [Unknown]
  - Sleep disorder [Unknown]
  - Hunger [Unknown]
  - Stress [Unknown]
  - Intentional dose omission [Unknown]
  - Off label use [Unknown]

NARRATIVE: CASE EVENT DATE: 20190531
